FAERS Safety Report 25550705 (Version 1)
Quarter: 2025Q3

REPORT INFORMATION
  Report Type: Spontaneous
  Country: EU (occurrence: EU)
  Receive Date: 20250714
  Receipt Date: 20250714
  Transmission Date: 20251020
  Serious: Yes (Other)
  Sender: BRISTOL-MYERS SQUIBB COMPANY
  Company Number: EU-BRISTOL-MYERS SQUIBB COMPANY-2025-097403

PATIENT
  Age: 54 Year
  Sex: Male

DRUGS (3)
  1. OPDIVO [Suspect]
     Active Substance: NIVOLUMAB
     Indication: Squamous cell carcinoma
     Dates: start: 202410
  2. FLUOROURACIL SODIUM [Suspect]
     Active Substance: FLUOROURACIL SODIUM
     Indication: Squamous cell carcinoma
     Dosage: Z1-5
     Dates: start: 202410
  3. CISPLATIN [Suspect]
     Active Substance: CISPLATIN
     Indication: Squamous cell carcinoma

REACTIONS (5)
  - Thrombocytopenia [Unknown]
  - Hepatic failure [Unknown]
  - Immune-mediated hepatitis [Unknown]
  - Neutropenia [Unknown]
  - Anaemia [Unknown]
